FAERS Safety Report 4742315-3 (Version None)
Quarter: 2005Q3

REPORT INFORMATION
  Report Type: 
  Country: None (occurrence: None)
  Receive Date: 20050811
  Receipt Date: 20050405
  Transmission Date: 20060218
  Serious: No
  Sender: FDA-Public Use
  Company Number: US-GLAXOSMITHKLINE-A0552830A

PATIENT
  Age: 57 Year

DRUGS (8)
  1. PAXIL CR [Suspect]
     Indication: DEPRESSION
     Dosage: 12.5MG PER DAY
     Route: 048
  2. DITROPAN [Concomitant]
  3. TRAZODONE [Concomitant]
  4. PREVACID [Concomitant]
  5. NEURONTIN [Concomitant]
  6. HYDROCODONE [Concomitant]
  7. NYSTATIN [Concomitant]
  8. LEXAPRO [Concomitant]

REACTIONS (4)
  - CRYING [None]
  - DEPRESSION [None]
  - DRUG WITHDRAWAL SYNDROME [None]
  - DRY THROAT [None]
